FAERS Safety Report 6959375-1 (Version None)
Quarter: 2010Q3

REPORT INFORMATION
  Report Type: 
  Country: None (occurrence: None)
  Receive Date: 20100831
  Receipt Date: 20100831
  Transmission Date: 20110219
  Serious: Yes (Other)
  Sender: FDA-Public Use
  Company Number: None

PATIENT
  Age: 43 Year
  Sex: Female
  Weight: 70.7611 kg

DRUGS (1)
  1. TOPIRAMATE [Suspect]
     Indication: MIGRAINE
     Dosage: 150 MG 2X DAY PO 2 WEEKS -AT THAT DOSE-
     Route: 048
     Dates: start: 20100715, end: 20100801

REACTIONS (3)
  - METABOLIC ACIDOSIS [None]
  - MIGRAINE [None]
  - PRODUCT SUBSTITUTION ISSUE [None]
